FAERS Safety Report 8421172-8 (Version None)
Quarter: 2012Q2

REPORT INFORMATION
  Report Type: 
  Country: None (occurrence: None)
  Receive Date: 20120604
  Receipt Date: 20120604
  Transmission Date: 20120825
  Serious: Yes (Hospitalization)
  Sender: FDA-Public Use
  Company Number: None

PATIENT
  Age: 68 Year
  Sex: Male
  Weight: 83.2 kg

DRUGS (1)
  1. NITROFURANTOIN [Suspect]
     Indication: BACTERIURIA
     Dosage: 100 MG BID PO
     Route: 048
     Dates: start: 20111025, end: 20111231

REACTIONS (3)
  - GASTROINTESTINAL INFECTION [None]
  - RESPIRATORY TRACT INFECTION [None]
  - ANGIOEDEMA [None]
